FAERS Safety Report 20320619 (Version 1)
Quarter: 2022Q1

REPORT INFORMATION
  Report Type: Spontaneous
  Country: US (occurrence: None)
  Receive Date: 20220111
  Receipt Date: 20220111
  Transmission Date: 20220423
  Serious: Yes (Hospitalization, Other)
  Sender: FDA-Public Use
  Company Number: US-Hikma Pharmaceuticals USA Inc.-US-H14001-21-05690

PATIENT
  Age: 71 Year
  Sex: Female
  Weight: 57.8 kg

DRUGS (2)
  1. PREDNISONE [Suspect]
     Active Substance: PREDNISONE
     Indication: Chronic graft versus host disease
     Route: 048
     Dates: start: 20210915, end: 20211030
  2. ITACITINIB [Suspect]
     Active Substance: ITACITINIB
     Indication: Chronic graft versus host disease
     Route: 048
     Dates: start: 20210915, end: 20211030

REACTIONS (2)
  - Pneumonia [Recovered/Resolved]
  - Asthenia [Unknown]

NARRATIVE: CASE EVENT DATE: 20211030
